FAERS Safety Report 23672909 (Version 1)
Quarter: 2024Q1

REPORT INFORMATION
  Report Type: Spontaneous
  Country: TR (occurrence: TR)
  Receive Date: 20240326
  Receipt Date: 20240326
  Transmission Date: 20240409
  Serious: Yes (Hospitalization, Other)
  Sender: FDA-Public Use
  Company Number: TR-ABBVIE-5691699

PATIENT
  Age: 51 Year
  Sex: Male

DRUGS (8)
  1. OZURDEX [Suspect]
     Active Substance: DEXAMETHASONE
     Indication: Retinal vein occlusion
     Dosage: TIME INTERVAL: AS NECESSARY: 5TH IMPLANT TO RIGHT EYE?FORM STRENGTH WAS 0.7MILLIGRAM
     Route: 050
  2. OZURDEX [Suspect]
     Active Substance: DEXAMETHASONE
     Dosage: TIME INTERVAL: AS NECESSARY: FIRST IMPLANT TO RIGHT EYE?FORM STRENGTH WAS 0.7MILLIGRAM
     Route: 050
  3. OZURDEX [Suspect]
     Active Substance: DEXAMETHASONE
     Dosage: TIME INTERVAL: AS NECESSARY: 3RD IMPLANT TO RIGHT EYE?FORM STRENGTH WAS 0.7MILLIGRAM
     Route: 050
  4. OZURDEX [Suspect]
     Active Substance: DEXAMETHASONE
     Dosage: TIME INTERVAL: AS NECESSARY: 4TH IMPLANT TO RIGHT EYE?FORM STRENGTH WAS 0.7MILLIGRAM
     Route: 050
  5. OZURDEX [Suspect]
     Active Substance: DEXAMETHASONE
     Dosage: TIME INTERVAL: AS NECESSARY: 7TH IMPLANT TO RIGHT EYE?FORM STRENGTH WAS 0.7MILLIGRAM
     Route: 050
  6. OZURDEX [Suspect]
     Active Substance: DEXAMETHASONE
     Dosage: TIME INTERVAL: AS NECESSARY: 2ND IMPLANT TO RIGHT EYE?FORM STRENGTH WAS 0.7MILLIGRAM
     Route: 050
  7. OZURDEX [Suspect]
     Active Substance: DEXAMETHASONE
     Dosage: TIME INTERVAL: AS NECESSARY: 6TH IMPLANT TO RIGHT EYE?FORM STRENGTH WAS 0.7MILLIGRAM
     Route: 050
  8. OZURDEX [Suspect]
     Active Substance: DEXAMETHASONE
     Dosage: TIME INTERVAL: AS NECESSARY: 8TH IMPLANT TO RIGHT EYE?FORM STRENGTH WAS 0.7MILLIGRAM
     Route: 050

REACTIONS (3)
  - Cataract [Unknown]
  - Intraocular pressure increased [Recovering/Resolving]
  - Myopia [Unknown]
